FAERS Safety Report 9786450 (Version 1)
Quarter: 2013Q4

REPORT INFORMATION
  Report Type: Spontaneous
  Country: US (occurrence: None)
  Receive Date: 20131226
  Receipt Date: 20131226
  Transmission Date: 20140711
  Serious: Yes (Death)
  Sender: FDA-Public Use
  Company Number: FK201305400

PATIENT
  Age: 60 Year
  Sex: Male

DRUGS (2)
  1. PROPOFOL [Suspect]
     Indication: COLONOSCOPY
  2. PROPOFOL [Suspect]
     Indication: ENDOSCOPY UPPER GASTROINTESTINAL TRACT

REACTIONS (3)
  - Overdose [None]
  - Circulatory collapse [None]
  - Respiratory arrest [None]
